FAERS Safety Report 10034710 (Version 9)
Quarter: 2015Q2

REPORT INFORMATION
  Report Type: Report from Study
  Country: CA (occurrence: CA)
  Receive Date: 20140325
  Receipt Date: 20150626
  Transmission Date: 20150821
  Serious: Yes (Hospitalization, Other)
  Sender: FDA-Public Use
  Company Number: CA-UCBSA-113620

PATIENT
  Age: 85 Year
  Sex: Female
  Weight: 82 kg

DRUGS (4)
  1. METHOTREXATE [Concomitant]
     Active Substance: METHOTREXATE
     Dosage: UNKNOWN DOSE
  2. CERTOLIZUMAB PEGOL RA [Suspect]
     Active Substance: CERTOLIZUMAB PEGOL
     Dosage: 400 MG, EV 2 WEEKS(QOW)
     Route: 058
     Dates: start: 20100827, end: 20100924
  3. CERTOLIZUMAB PEGOL RA [Suspect]
     Active Substance: CERTOLIZUMAB PEGOL
     Indication: RHEUMATOID ARTHRITIS
     Dosage: DRUG WAS TEMPORARILY INTERRUPTED , LOT NO :116025, EXP DATE: MAR-2015
     Route: 058
     Dates: start: 20101008
  4. SULFATRIM [Concomitant]
     Active Substance: SULFAMETHOXAZOLE\TRIMETHOPRIM
     Indication: CYSTITIS
     Dates: start: 20140219, end: 201402

REACTIONS (10)
  - Dehydration [Not Recovered/Not Resolved]
  - Musculoskeletal stiffness [Unknown]
  - Cystitis [Recovered/Resolved]
  - Blood urine present [Unknown]
  - Pain in extremity [Not Recovered/Not Resolved]
  - Urine abnormality [Not Recovered/Not Resolved]
  - Candida infection [Not Recovered/Not Resolved]
  - Peripheral swelling [Not Recovered/Not Resolved]
  - Dry mouth [Not Recovered/Not Resolved]
  - Abasia [Unknown]

NARRATIVE: CASE EVENT DATE: 2014
